FAERS Safety Report 5029232-9 (Version None)
Quarter: 2006Q2

REPORT INFORMATION
  Report Type: 
  Country: None (occurrence: None)
  Receive Date: 20060615
  Receipt Date: 20060615
  Transmission Date: 20061013
  Serious: Yes (Disabling, Other)
  Sender: FDA-Public Use
  Company Number: None

PATIENT
  Sex: Female
  Weight: 47.6277 kg

DRUGS (1)
  1. FOSAMAX [Suspect]
     Indication: OSTEOPOROSIS
     Dosage: 70 MG    WEEKLY   PO
     Route: 048
     Dates: start: 19950131, end: 20060425

REACTIONS (2)
  - TOOTH FRACTURE [None]
  - TOOTH LOSS [None]
